FAERS Safety Report 15534568 (Version 2)
Quarter: 2018Q4

REPORT INFORMATION
  Report Type: Spontaneous
  Country: IT (occurrence: IT)
  Receive Date: 20181022
  Receipt Date: 20181115
  Transmission Date: 20190205
  Serious: Yes (Death)
  Sender: FDA-Public Use
  Company Number: IT-ABBVIE-18K-083-2526061-00

PATIENT
  Age: 67 Year
  Sex: Male

DRUGS (3)
  1. VENCLYXTO [Suspect]
     Active Substance: VENETOCLAX
     Indication: DISSEMINATED LARGE CELL LYMPHOMA
     Route: 048
     Dates: start: 20180828, end: 20180920
  2. BENDAMUSTINE [Concomitant]
     Active Substance: BENDAMUSTINE
     Indication: DISSEMINATED LARGE CELL LYMPHOMA
  3. RITUXIMAB. [Concomitant]
     Active Substance: RITUXIMAB
     Indication: DISSEMINATED LARGE CELL LYMPHOMA

REACTIONS (2)
  - Disseminated large cell lymphoma [Fatal]
  - Off label use [Unknown]

NARRATIVE: CASE EVENT DATE: 20180828
